FAERS Safety Report 23721187 (Version 2)
Quarter: 2024Q2

REPORT INFORMATION
  Report Type: Spontaneous
  Country: US (occurrence: US)
  Receive Date: 20240409
  Receipt Date: 20240414
  Transmission Date: 20240715
  Serious: No
  Sender: FDA-Public Use
  Company Number: US-BAUSCHBL-2024BNL004183

PATIENT
  Sex: Female

DRUGS (1)
  1. LOTEMAX SM [Suspect]
     Active Substance: LOTEPREDNOL ETABONATE
     Indication: Eye inflammation
     Dosage: ONE DROP AT BEDTIME
     Route: 047
     Dates: start: 2021

REACTIONS (5)
  - Vision blurred [Unknown]
  - Eyelash injury [Unknown]
  - Eye discharge [Unknown]
  - Product residue present [Unknown]
  - Product physical consistency issue [Unknown]
